FAERS Safety Report 4312897-4 (Version None)
Quarter: 2004Q1

REPORT INFORMATION
  Report Type: 
  Country: None (occurrence: None)
  Receive Date: 20040302
  Receipt Date: 20031111
  Transmission Date: 20041129
  Serious: No
  Sender: FDA-Public Use
  Company Number: WAES 0311USA01061

PATIENT

DRUGS (2)
  1. CANCIDAS [Suspect]
     Indication: CANDIDIASIS
     Dosage: 30 MG/1X/IV; 50 MG/DAILY/IV
     Route: 042
  2. DEXAMETHASONE [Concomitant]

REACTIONS (1)
  - CANDIDIASIS [None]
